FAERS Safety Report 25828988 (Version 1)
Quarter: 2025Q3

REPORT INFORMATION
  Report Type: Spontaneous
  Country: EU (occurrence: EU)
  Receive Date: 20250922
  Receipt Date: 20250922
  Transmission Date: 20251020
  Serious: Yes (Other)
  Sender: BRISTOL-MYERS SQUIBB COMPANY
  Company Number: EU-BRISTOL-MYERS SQUIBB COMPANY-2025-126821

PATIENT
  Age: 77 Year
  Sex: Male

DRUGS (5)
  1. VIDAZA [Suspect]
     Active Substance: AZACITIDINE
     Indication: Acute myeloid leukaemia
  2. VIDAZA [Suspect]
     Active Substance: AZACITIDINE
     Indication: Chronic myelomonocytic leukaemia
  3. VIDAZA [Suspect]
     Active Substance: AZACITIDINE
     Indication: Myelodysplastic syndrome
  4. VENETOCLAX [Concomitant]
     Active Substance: VENETOCLAX
     Indication: Acute myeloid leukaemia refractory
  5. VENETOCLAX [Concomitant]
     Active Substance: VENETOCLAX
     Indication: Chronic myelomonocytic leukaemia

REACTIONS (3)
  - Haemoglobin abnormal [Unknown]
  - Bone marrow myelogram abnormal [Unknown]
  - Blast cells present [Unknown]

NARRATIVE: CASE EVENT DATE: 20250901
